FAERS Safety Report 23411217 (Version 1)
Quarter: 2024Q1

REPORT INFORMATION
  Report Type: Spontaneous
  Country: US (occurrence: None)
  Receive Date: 20240116
  Receipt Date: 20240116
  Transmission Date: 20240409
  Serious: Yes (Other)
  Sender: FDA-Public Use
  Company Number: None

PATIENT
  Age: 17 Year
  Sex: Female
  Weight: 75.2 kg

DRUGS (1)
  1. YESCARTA [Suspect]
     Active Substance: AXICABTAGENE CILOLEUCEL
     Indication: Diffuse large B-cell lymphoma refractory
     Dosage: OTHER FREQUENCY : 1;?
     Route: 042
     Dates: start: 20231030, end: 20231030

REACTIONS (13)
  - Cytokine release syndrome [None]
  - Immune effector cell-associated neurotoxicity syndrome [None]
  - Acute kidney injury [None]
  - Transplant failure [None]
  - Transplant rejection [None]
  - Paraplegia [None]
  - Melaena [None]
  - Cytomegalovirus viraemia [None]
  - Fungaemia [None]
  - Bacteraemia [None]
  - Pancytopenia [None]
  - Abdominal mass [None]
  - Upper gastrointestinal haemorrhage [None]

NARRATIVE: CASE EVENT DATE: 20231215
